FAERS Safety Report 12681559 (Version 1)
Quarter: 2016Q3

REPORT INFORMATION
  Report Type: Spontaneous
  Country: US (occurrence: US)
  Receive Date: 20160824
  Receipt Date: 20160824
  Transmission Date: 20161109
  Serious: Yes (Other)
  Sender: FDA-Public Use
  Company Number: US-DSJP-DSU-2016-127701

PATIENT

DRUGS (2)
  1. BENICAR HCT [Suspect]
     Active Substance: HYDROCHLOROTHIAZIDE\OLMESARTAN MEDOXOMIL
     Indication: PRODUCT USED FOR UNKNOWN INDICATION
     Dosage: UNK
     Dates: start: 2005
  2. BENICAR [Suspect]
     Active Substance: OLMESARTAN MEDOXOMIL
     Indication: PRODUCT USED FOR UNKNOWN INDICATION
     Dosage: UNK
     Dates: start: 2005

REACTIONS (8)
  - Colitis [Unknown]
  - Gastrooesophageal reflux disease [Unknown]
  - Chronic sinusitis [Unknown]
  - Weight decreased [Unknown]
  - Fatigue [Unknown]
  - Gallbladder operation [Unknown]
  - Vitamin D deficiency [Unknown]
  - Diverticulitis [Unknown]
